FAERS Safety Report 11287998 (Version 1)
Quarter: 2015Q3

REPORT INFORMATION
  Report Type: Spontaneous
  Country: US (occurrence: US)
  Receive Date: 20150721
  Receipt Date: 20150721
  Transmission Date: 20151125
  Serious: No
  Sender: FDA-Public Use
  Company Number: US-TEVA-579510ACC

PATIENT
  Age: 1 Year
  Sex: Female

DRUGS (1)
  1. PLAN B ONE-STEP [Suspect]
     Active Substance: LEVONORGESTREL
     Indication: POST COITAL CONTRACEPTION
     Route: 063
     Dates: start: 201503, end: 201503

REACTIONS (3)
  - Exposure during breast feeding [Unknown]
  - Dysgeusia [Unknown]
  - Anxiety [Unknown]

NARRATIVE: CASE EVENT DATE: 201503
